FAERS Safety Report 14838570 (Version 3)
Quarter: 2018Q2

REPORT INFORMATION
  Report Type: Report from Study
  Country: IT (occurrence: IT)
  Receive Date: 20180502
  Receipt Date: 20180511
  Transmission Date: 20180711
  Serious: Yes (Other)
  Sender: FDA-Public Use
  Company Number: IT-PFIZER INC-2018181746

PATIENT
  Age: 63 Year
  Sex: Female

DRUGS (2)
  1. METHOTREXATE. [Suspect]
     Active Substance: METHOTREXATE
     Indication: LYMPHOMA
     Dosage: 1 DF, AS NEEDED
  2. PURINETHOL [Suspect]
     Active Substance: MERCAPTOPURINE
     Indication: LYMPHOMA
     Dosage: 1 DF, 1X/DAY
     Route: 048
     Dates: start: 20180207, end: 20180209

REACTIONS (2)
  - Thrombocytopenia [Unknown]
  - Epistaxis [Unknown]

NARRATIVE: CASE EVENT DATE: 20180209
